FAERS Safety Report 7060004-X (Version None)
Quarter: 2010Q4

REPORT INFORMATION
  Report Type: 
  Country: None (occurrence: None)
  Receive Date: 20101025
  Receipt Date: 20101019
  Transmission Date: 20110411
  Serious: Yes (Death)
  Sender: FDA-Public Use
  Company Number: ES-JNJFOC-20101005589

PATIENT
  Age: 43 Year
  Sex: Male

DRUGS (1)
  1. DORIPENEM [Suspect]
     Indication: RESPIRATORY TRACT INFECTION
     Route: 041

REACTIONS (2)
  - CEREBRAL HAEMORRHAGE [None]
  - PULMONARY HAEMORRHAGE [None]
